FAERS Safety Report 5767108-X (Version None)
Quarter: 2008Q2

REPORT INFORMATION
  Report Type: 
  Country: None (occurrence: None)
  Receive Date: 20080609
  Receipt Date: 20080317
  Transmission Date: 20081010
  Serious: No
  Sender: FDA-Public Use
  Company Number: 002#1#2008-00134

PATIENT
  Age: 84 Year
  Sex: Female

DRUGS (9)
  1. NEUPRO [Suspect]
     Indication: PARKINSON'S DISEASE
     Dosage: 6MG/24H,1 IN 1 D,TRANSDERMAL ; 4MG/24H,1 IN 1 D,TRANSDERMAL
     Route: 062
  2. CARBIDOPA AND LEVODOPA [Concomitant]
  3. CYMBALTA [Concomitant]
  4. HYDROCHLOROTHIAZIDE [Concomitant]
  5. POTASSIUM CHLORIDE [Concomitant]
  6. ALPRAZOLAM [Concomitant]
  7. SINGULAIR [Concomitant]
  8. ACIPHEX [Concomitant]
  9. ADVAIR DISKUS 100/50 [Concomitant]

REACTIONS (1)
  - BLOOD PRESSURE INCREASED [None]
